FAERS Safety Report 9909533 (Version 1)
Quarter: 2014Q1

REPORT INFORMATION
  Report Type: Spontaneous
  Country: US (occurrence: US)
  Receive Date: 20140219
  Receipt Date: 20140219
  Transmission Date: 20141002
  Serious: No
  Sender: FDA-Public Use
  Company Number: US-009507513-1402USA008852

PATIENT
  Sex: Female

DRUGS (1)
  1. NEXPLANON [Suspect]

REACTIONS (3)
  - Injury [Unknown]
  - Product closure removal difficult [Unknown]
  - Accidental exposure to product [Unknown]
